FAERS Safety Report 9220997 (Version 2)
Quarter: 2013Q2

REPORT INFORMATION
  Report Type: Spontaneous
  Country: US (occurrence: US)
  Receive Date: 20130409
  Receipt Date: 20130510
  Transmission Date: 20140414
  Serious: Yes (Other)
  Sender: FDA-Public Use
  Company Number: US-PFIZER INC-2013106620

PATIENT
  Sex: Female

DRUGS (1)
  1. ESTROGENS CONJUGATED [Suspect]
     Dosage: UNK

REACTIONS (3)
  - Deafness [Unknown]
  - Blindness [Unknown]
  - Drug effect decreased [Unknown]
